FAERS Safety Report 24190713 (Version 1)
Quarter: 2024Q3

REPORT INFORMATION
  Report Type: Spontaneous
  Country: PL (occurrence: PL)
  Receive Date: 20240808
  Receipt Date: 20240808
  Transmission Date: 20241017
  Serious: Yes (Hospitalization, Other)
  Sender: MYLAN
  Company Number: PL-SUN PHARMACEUTICAL INDUSTRIES LTD-2024R1-457592

PATIENT
  Age: 49 Year
  Sex: Male

DRUGS (15)
  1. DOXAZOSIN [Suspect]
     Active Substance: DOXAZOSIN MESYLATE
     Indication: Hypertension
     Dosage: UNK
     Route: 065
  2. DAPAGLIFLOZIN [Suspect]
     Active Substance: DAPAGLIFLOZIN
     Indication: Hypertension
     Dosage: UNK
     Route: 065
  3. CLONIDINE [Suspect]
     Active Substance: CLONIDINE
     Indication: Hypertension
     Dosage: UNK
     Route: 065
  4. MANNITOL [Suspect]
     Active Substance: MANNITOL
     Indication: Hypertension
     Dosage: UNK
     Route: 065
  5. NITRENDIPINE [Suspect]
     Active Substance: NITRENDIPINE
     Indication: Hypertension
     Dosage: 40 MILLIGRAM
     Route: 065
  6. CHLORTHALIDONE [Suspect]
     Active Substance: CHLORTHALIDONE
     Indication: Hypertension
     Dosage: UNK
     Route: 065
  7. URAPIDIL [Suspect]
     Active Substance: URAPIDIL
     Indication: Hypertension
     Dosage: UNK
     Route: 065
  8. HYDROXYZINE [Suspect]
     Active Substance: HYDROXYZINE HYDROCHLORIDE
     Indication: Hypertension
     Dosage: UNK
     Route: 065
  9. NITROGLYCERIN [Suspect]
     Active Substance: NITROGLYCERIN
     Indication: Hypertension
     Dosage: UNK
     Route: 042
  10. NEBIVOLOL [Suspect]
     Active Substance: NEBIVOLOL
     Indication: Hypertension
     Dosage: UNK
     Route: 048
  11. SPIRONOLACTONE [Suspect]
     Active Substance: SPIRONOLACTONE
     Indication: Hypertension
     Dosage: UNK
     Route: 065
  12. ZOFENOPRIL [Suspect]
     Active Substance: ZOFENOPRIL
     Indication: Hypertension
     Dosage: UNK
     Route: 065
  13. FUROSEMIDE [Suspect]
     Active Substance: FUROSEMIDE
     Indication: Hypertension
     Dosage: UNK
     Route: 065
  14. OLMESARTAN [Suspect]
     Active Substance: OLMESARTAN
     Indication: Hypertension
     Dosage: UNK
     Route: 065
  15. METHYLDOPA [Suspect]
     Active Substance: METHYLDOPA
     Indication: Hypertension
     Dosage: UNK
     Route: 065

REACTIONS (3)
  - Drug resistance [Unknown]
  - Condition aggravated [Unknown]
  - Drug ineffective [Unknown]
